FAERS Safety Report 11909906 (Version 1)
Quarter: 2016Q1

REPORT INFORMATION
  Report Type: Spontaneous
  Country: US (occurrence: US)
  Receive Date: 20160112
  Receipt Date: 20160112
  Transmission Date: 20160526
  Serious: Yes (Disabling)
  Sender: FDA-Public Use
  Company Number: US-FRESENIUS KABI-FK201600103

PATIENT
  Sex: Female

DRUGS (1)
  1. ACETYLCYSTEINE (MANUFACTURER UNKNOWN) [Suspect]
     Active Substance: ACETYLCYSTEINE
     Indication: ACCIDENTAL OVERDOSE
     Route: 042

REACTIONS (5)
  - Dose calculation error [Not Recovered/Not Resolved]
  - Apallic syndrome [Not Recovered/Not Resolved]
  - Medication monitoring error [Not Recovered/Not Resolved]
  - Accidental overdose [Not Recovered/Not Resolved]
  - Prescription drug used without a prescription [Not Recovered/Not Resolved]
